FAERS Safety Report 5717252-8 (Version None)
Quarter: 2008Q2

REPORT INFORMATION
  Report Type: 
  Country: None (occurrence: None)
  Receive Date: 20080424
  Receipt Date: 20080416
  Transmission Date: 20081010
  Serious: Yes (Hospitalization)
  Sender: FDA-Public Use
  Company Number: PHHO2008IT02938

PATIENT
  Age: 66 Year
  Sex: Female

DRUGS (1)
  1. EXJADE [Suspect]
     Indication: IRON OVERLOAD
     Dosage: 1625 MG/DAY
     Route: 048
     Dates: start: 20080208, end: 20080226

REACTIONS (4)
  - ANAEMIA [None]
  - CARDIAC FAILURE [None]
  - DYSPNOEA [None]
  - PYREXIA [None]
